FAERS Safety Report 21145040 (Version 1)
Quarter: 2022Q3

REPORT INFORMATION
  Report Type: Spontaneous
  Country: AU (occurrence: AU)
  Receive Date: 20220729
  Receipt Date: 20220729
  Transmission Date: 20221027
  Serious: Yes (Hospitalization, Other)
  Sender: FDA-Public Use
  Company Number: AU-BAXTER-2022BAX014192

PATIENT
  Age: 61 Year
  Sex: Female

DRUGS (9)
  1. MAGNESIUM SULFATE [Suspect]
     Active Substance: MAGNESIUM SULFATE
     Indication: Hypomagnesaemia
     Dosage: 40 MMOL, ROUTE OF ADMINISTRATION IS INFUSOPORT
     Route: 042
     Dates: start: 20220629, end: 20220629
  2. MAGNESIUM SULFATE [Suspect]
     Active Substance: MAGNESIUM SULFATE
     Dosage: 40 MMOL, ROUTE OF ADMINISTRATION IS INFUSOPORT
     Route: 042
     Dates: start: 20220705, end: 202207
  3. MAGNESIUM SULFATE [Suspect]
     Active Substance: MAGNESIUM SULFATE
     Dosage: 40 MMOL
     Route: 042
     Dates: start: 20220708
  4. SODIUM CHLORIDE [Suspect]
     Active Substance: SODIUM CHLORIDE
     Indication: Medication dilution
     Dosage: 1050 ML, ROUTE OF ADMINISTRATION IS INFUSOPORT
     Route: 042
     Dates: start: 20220629, end: 20220629
  5. SODIUM CHLORIDE [Suspect]
     Active Substance: SODIUM CHLORIDE
     Indication: Flushing
     Dosage: 1050 ML, ROUTE OF ADMINISTRATION IS INFUSOPORT
     Route: 042
     Dates: start: 20220705, end: 202207
  6. SODIUM CHLORIDE [Suspect]
     Active Substance: SODIUM CHLORIDE
     Dosage: 100 ML
     Route: 042
     Dates: start: 20220708
  7. HYDROCORTISONE [Suspect]
     Active Substance: HYDROCORTISONE
     Indication: Rash pruritic
     Dosage: 100 MG
     Route: 042
     Dates: start: 20220705
  8. HYDROCORTISONE [Suspect]
     Active Substance: HYDROCORTISONE
     Indication: Lip swelling
  9. ISOPROPYL ALCOHOL [Concomitant]
     Active Substance: ISOPROPYL ALCOHOL
     Indication: Sterilisation

REACTIONS (11)
  - Anaphylactic reaction [Recovering/Resolving]
  - Malaise [Unknown]
  - Urticaria [Unknown]
  - Lip swelling [Recovered/Resolved]
  - Throat tightness [Unknown]
  - Presyncope [Unknown]
  - Tryptase increased [Unknown]
  - Rash pruritic [Unknown]
  - Paraesthesia oral [Recovered/Resolved]
  - Palmar erythema [Recovered/Resolved]
  - Dysphonia [Unknown]

NARRATIVE: CASE EVENT DATE: 20220629
